FAERS Safety Report 20524802 (Version 1)
Quarter: 2022Q1

REPORT INFORMATION
  Report Type: Spontaneous
  Country: US (occurrence: None)
  Receive Date: 20220225
  Receipt Date: 20220225
  Transmission Date: 20220423
  Serious: No
  Sender: FDA-Public Use
  Company Number: None

PATIENT
  Age: 87 Year
  Sex: Female

DRUGS (2)
  1. KEYTRUDA [Suspect]
     Active Substance: PEMBROLIZUMAB
     Route: 042
     Dates: start: 202112, end: 202201
  2. IBRANCE [Concomitant]
     Active Substance: PALBOCICLIB

REACTIONS (5)
  - Eye infection [None]
  - Syncope [None]
  - Asthenia [None]
  - Cognitive disorder [None]
  - Infusion related reaction [None]

NARRATIVE: CASE EVENT DATE: 20220118
